FAERS Safety Report 12986764 (Version 2)
Quarter: 2016Q4

REPORT INFORMATION
  Report Type: Spontaneous
  Country: FR (occurrence: FR)
  Receive Date: 20161130
  Receipt Date: 20161206
  Transmission Date: 20170207
  Serious: Yes (Hospitalization)
  Sender: FDA-Public Use
  Company Number: FR-TEVA-713547ROM

PATIENT
  Age: 13 Year
  Sex: Female
  Weight: 40 kg

DRUGS (2)
  1. CARBOPLATINE HOSPIRA [Suspect]
     Active Substance: CARBOPLATIN
     Indication: EWING^S SARCOMA
     Dosage: 310 MILLIGRAM DAILY;
     Route: 042
     Dates: start: 20160506, end: 20160508
  2. ETOPOSIDE TEVA [Suspect]
     Active Substance: ETOPOSIDE
     Indication: EWING^S SARCOMA
     Dosage: 240 MILLIGRAM DAILY;
     Route: 042
     Dates: start: 20160506, end: 20160508

REACTIONS (1)
  - Bone marrow failure [Recovered/Resolved]

NARRATIVE: CASE EVENT DATE: 20160516
